FAERS Safety Report 9781444 (Version 1)
Quarter: 2013Q4

REPORT INFORMATION
  Report Type: Report from Study
  Country: TN (occurrence: TN)
  Receive Date: 20131224
  Receipt Date: 20131224
  Transmission Date: 20140711
  Serious: Yes (Death)
  Sender: FDA-Public Use
  Company Number: TN-SA-2013SA132527

PATIENT
  Age: 82 Year
  Sex: Male

DRUGS (11)
  1. PLAVIX [Suspect]
     Indication: ANGINA UNSTABLE
     Route: 048
     Dates: start: 20130625, end: 20131116
  2. PLAVIX [Suspect]
     Indication: STENT PLACEMENT
     Route: 048
     Dates: start: 20130625, end: 20131116
  3. ASPEGIC [Concomitant]
     Route: 048
     Dates: end: 20131116
  4. CORVASAL [Concomitant]
     Route: 048
     Dates: end: 20131116
  5. CORDARONE [Concomitant]
     Route: 048
     Dates: end: 20131116
  6. TAHOR [Concomitant]
     Route: 048
     Dates: end: 20131116
  7. CAPTOPRIL [Concomitant]
     Route: 048
     Dates: end: 20131116
  8. LASILIX [Concomitant]
     Route: 048
     Dates: end: 20131116
  9. DIAMICRON [Concomitant]
     Route: 048
     Dates: end: 20131116
  10. GLUCOPHAGE [Concomitant]
     Route: 048
     Dates: end: 20131116
  11. PANTOPRAZOLE [Concomitant]
     Route: 048
     Dates: end: 20131116

REACTIONS (1)
  - Multi-organ failure [Fatal]
